FAERS Safety Report 21607102 (Version 2)
Quarter: 2022Q4

REPORT INFORMATION
  Report Type: Spontaneous
  Country: US (occurrence: US)
  Receive Date: 20221117
  Receipt Date: 20221212
  Transmission Date: 20230113
  Serious: Yes (Other)
  Sender: FDA-Public Use
  Company Number: US-PFIZER INC-PV202200105097

PATIENT
  Age: 76 Year
  Sex: Female
  Weight: 75.737 kg

DRUGS (2)
  1. ESTRING [Suspect]
     Active Substance: ESTRADIOL
     Dosage: ESTRING 2MG, 2.5MCG PER 24 HOURS VAGINAL RING
     Route: 067
  2. ESTRING [Suspect]
     Active Substance: ESTRADIOL
     Dosage: 1 EVERY 3 MONTHS

REACTIONS (2)
  - Neoplasm malignant [Unknown]
  - Therapeutic response unexpected [Unknown]
